FAERS Safety Report 7477311-9 (Version None)
Quarter: 2011Q2

REPORT INFORMATION
  Report Type: 
  Country: None (occurrence: None)
  Receive Date: 20110513
  Receipt Date: 20110503
  Transmission Date: 20111010
  Serious: No
  Sender: FDA-Public Use
  Company Number: US-BIOGENIDEC-2011BI000726

PATIENT
  Sex: Female

DRUGS (2)
  1. TYSABRI [Suspect]
     Indication: MULTIPLE SCLEROSIS
     Route: 042
     Dates: start: 20100825
  2. TYSABRI [Suspect]
     Route: 042
     Dates: start: 20081204, end: 20100121

REACTIONS (5)
  - FALL [None]
  - MULTIPLE SCLEROSIS [None]
  - ASTHENIA [None]
  - LOSS OF CONTROL OF LEGS [None]
  - GAIT DISTURBANCE [None]
